FAERS Safety Report 7685278-3 (Version None)
Quarter: 2011Q3

REPORT INFORMATION
  Report Type: 
  Country: None (occurrence: None)
  Receive Date: 20110816
  Receipt Date: 20110811
  Transmission Date: 20111222
  Serious: Yes (Hospitalization)
  Sender: FDA-Public Use
  Company Number: FR-PFIZER INC-2011184488

PATIENT
  Age: 67 Year
  Sex: Male

DRUGS (8)
  1. PIPERACILLIN AND TAZOBACTAM [Suspect]
     Indication: ERYSIPELAS
     Dosage: 12G/DAY
     Dates: start: 20110401, end: 20110414
  2. BISOPROLOL FUMARATE [Concomitant]
     Dosage: 1 DF, 1X/DAY
  3. ZANTAC [Concomitant]
     Dosage: 1 DF, 1X/DAY
     Route: 042
  4. LOVENOX [Concomitant]
     Dosage: 2 DF PER DAY
  5. TORENTAL [Concomitant]
     Dosage: 1 DF, 1X/DAY
     Dates: start: 20110411
  6. PRIMPERAN TAB [Concomitant]
     Dosage: 3 DF PER DAY
     Route: 042
  7. ACTRAPID [Concomitant]
  8. DEBRIDAT [Concomitant]
     Dosage: 3 DF PER DAY
     Route: 042

REACTIONS (1)
  - TOXIC SKIN ERUPTION [None]
